FAERS Safety Report 18947929 (Version 4)
Quarter: 2022Q2

REPORT INFORMATION
  Report Type: Report from Study
  Country: IT (occurrence: IT)
  Receive Date: 20210226
  Receipt Date: 20220606
  Transmission Date: 20220721
  Serious: Yes (Other)
  Sender: FDA-Public Use
  Company Number: IT-ROCHE-2762701

PATIENT
  Age: 73 Year
  Sex: Female
  Weight: 70 kg

DRUGS (16)
  1. PACLITAXEL [Suspect]
     Active Substance: PACLITAXEL
     Indication: HER2 positive breast cancer
     Dosage: 145 MG, WEEKLY
     Route: 042
     Dates: start: 20181112, end: 20190306
  2. PALBOCICLIB [Suspect]
     Active Substance: PALBOCICLIB
     Indication: HER2 positive breast cancer
     Dosage: 125 MG
     Route: 048
     Dates: start: 20200608, end: 20210713
  3. TRASTUZUMAB [Suspect]
     Active Substance: TRASTUZUMAB
     Indication: HER2 positive breast cancer
     Dosage: 6 MG/KG, EVERY 3 WEEKS
     Route: 041
     Dates: start: 20181112, end: 20190121
  4. EXEMESTANE [Suspect]
     Active Substance: EXEMESTANE
     Indication: HER2 positive breast cancer
     Dosage: 25 MG, 1X/DAY
     Route: 048
     Dates: start: 20190320, end: 20200607
  5. PERTUZUMAB [Suspect]
     Active Substance: PERTUZUMAB
     Indication: HER2 positive breast cancer
     Dosage: 420 MG, EVERY 3 WEEKS
     Route: 042
     Dates: start: 20181112, end: 20200327
  6. FULVESTRANT [Suspect]
     Active Substance: FULVESTRANT
     Indication: Breast cancer
     Dosage: 500 MG EVERY 4 WEEKS
     Route: 030
     Dates: start: 20200608
  7. FULVESTRANT [Suspect]
     Active Substance: FULVESTRANT
     Indication: HER2 positive breast cancer
  8. OLMESARTAN MEDOXOMIL [Concomitant]
     Active Substance: OLMESARTAN MEDOXOMIL
     Dosage: 40 MG, DAILY
     Route: 048
     Dates: start: 20191113
  9. CHOLECALCIFEROL [Concomitant]
     Active Substance: CHOLECALCIFEROL
     Dosage: UNK, MONTHLY
     Route: 048
     Dates: start: 20190529
  10. NEBIVOLOL [Concomitant]
     Active Substance: NEBIVOLOL
     Dosage: 5 MG
     Route: 048
  11. AMOXICILLIN\CLAVULANIC ACID [Concomitant]
     Active Substance: AMOXICILLIN\CLAVULANIC ACID
  12. ONDANSETRON [Concomitant]
     Active Substance: ONDANSETRON
     Dosage: UNK, WEEKLY
     Dates: start: 20181022, end: 20190306
  13. CHLORPHENIRAMINE MALEATE [Concomitant]
     Active Substance: CHLORPHENIRAMINE MALEATE
     Dosage: UNK, WEEKLY
     Route: 042
     Dates: start: 20181022, end: 20190306
  14. HYDROCORTISONE [Concomitant]
     Active Substance: HYDROCORTISONE
     Dosage: 250 MG, WEEKLY
     Route: 042
     Dates: start: 20181022, end: 20181210
  15. DEXAMETHASONE [Concomitant]
     Active Substance: DEXAMETHASONE
     Dosage: 8 MG, WEEKLY
     Route: 042
     Dates: start: 20181218, end: 20190218
  16. RANITIDINE [Concomitant]
     Active Substance: RANITIDINE
     Dosage: UNK, WEEKLY
     Route: 042
     Dates: start: 20181022, end: 20190306

REACTIONS (1)
  - Neutropenia [Not Recovered/Not Resolved]

NARRATIVE: CASE EVENT DATE: 20200622
